FAERS Safety Report 6714236-8 (Version None)
Quarter: 2010Q2

REPORT INFORMATION
  Report Type: 
  Country: None (occurrence: None)
  Receive Date: 20100504
  Receipt Date: 20100104
  Transmission Date: 20101027
  Serious: Yes (Other)
  Sender: FDA-Public Use
  Company Number: KD-S-20100001

PATIENT
  Age: 43 Year
  Sex: Male
  Weight: 70 kg

DRUGS (3)
  1. OESTRODOSE (GYNOKADIN) (GEL) [Suspect]
     Indication: HORMONE THERAPY
     Dosage: 3 DOSAGE FORMS, 3 IN 1 D, TRANSCUTANEOUS; 4 DOSAGE FORMS, 2 IN 1 D, TRANSCUTANEOUS
     Dates: start: 20090417, end: 20090422
  2. OESTRODOSE (GYNOKADIN) (GEL) [Suspect]
     Indication: HORMONE THERAPY
     Dosage: 3 DOSAGE FORMS, 3 IN 1 D, TRANSCUTANEOUS; 4 DOSAGE FORMS, 2 IN 1 D, TRANSCUTANEOUS
     Dates: start: 20090423, end: 20090428
  3. ESTRADIOL (FILM-COATED TABLET) [Concomitant]

REACTIONS (3)
  - HEPATITIS ACUTE [None]
  - INCORRECT DOSE ADMINISTERED [None]
  - TREATMENT NONCOMPLIANCE [None]
